FAERS Safety Report 17411518 (Version 1)
Quarter: 2020Q1

REPORT INFORMATION
  Report Type: Spontaneous
  Country: CN (occurrence: CN)
  Receive Date: 20200213
  Receipt Date: 20200213
  Transmission Date: 20200409
  Serious: Yes (Life-Threatening, Hospitalization, Other)
  Sender: FDA-Public Use
  Company Number: CN-SUN PHARMACEUTICAL INDUSTRIES LTD-2020R1-236129

PATIENT
  Age: 26 Year
  Sex: Female

DRUGS (1)
  1. PREDNISONE. [Suspect]
     Active Substance: PREDNISONE
     Indication: PRODUCT USED FOR UNKNOWN INDICATION
     Dosage: UNK
     Route: 065

REACTIONS (11)
  - Procedural haemorrhage [Recovering/Resolving]
  - Arterial thrombosis [Recovering/Resolving]
  - Maternal exposure during pregnancy [Unknown]
  - Uterine contractions abnormal [Recovering/Resolving]
  - Vaginal haemorrhage [Recovering/Resolving]
  - Treatment noncompliance [Unknown]
  - Haemorrhage [Recovering/Resolving]
  - Premature delivery [Unknown]
  - Condition aggravated [Unknown]
  - Abdominal pain [Recovering/Resolving]
  - Fibrinolysis [Unknown]
